FAERS Safety Report 8986298 (Version 2)
Quarter: 2013Q1

REPORT INFORMATION
  Report Type: Spontaneous
  Country: SG (occurrence: None)
  Receive Date: 20121217
  Receipt Date: 20130304
  Transmission Date: 20140127
  Serious: Yes (Hospitalization)
  Sender: FDA-Public Use
  Company Number: POMP-1002659

PATIENT
  Age: 14 Month
  Sex: Female
  Weight: 9.9 kg

DRUGS (1)
  1. MYOZYME [Suspect]
     Indication: GLYCOGEN STORAGE DISEASE TYPE II
     Route: 042

REACTIONS (4)
  - Infection [None]
  - Device occlusion [None]
  - Respiratory distress [None]
  - Pneumonia aspiration [None]
